FAERS Safety Report 20592698 (Version 1)
Quarter: 2022Q1

REPORT INFORMATION
  Report Type: Spontaneous
  Country: US (occurrence: None)
  Receive Date: 20220314
  Receipt Date: 20220314
  Transmission Date: 20220424
  Serious: No
  Sender: FDA-Public Use
  Company Number: US-ROCHE-2745927

PATIENT
  Sex: Female
  Weight: 103.06 kg

DRUGS (1)
  1. XOLAIR [Suspect]
     Active Substance: OMALIZUMAB
     Indication: Urticaria
     Dosage: TWO 150 MG VIALS EVERY TWO WEEKS?VIAL
     Route: 058
     Dates: start: 202007

REACTIONS (5)
  - Product reconstitution quality issue [Unknown]
  - Intentional product misuse [Unknown]
  - Off label use [Unknown]
  - Inappropriate schedule of product administration [Unknown]
  - No adverse event [Unknown]
